FAERS Safety Report 9257128 (Version 1)
Quarter: 2013Q2

REPORT INFORMATION
  Report Type: Spontaneous
  Country: DE (occurrence: None)
  Receive Date: 20130423
  Receipt Date: 20130423
  Transmission Date: 20140414
  Serious: Yes (Other)
  Sender: FDA-Public Use
  Company Number: AUR-APL-2013-03250

PATIENT
  Age: 59 Year
  Sex: Male

DRUGS (2)
  1. SIMVASTATIN (SIMVASTATIN) [Suspect]
     Indication: TYPE IIB HYPERLIPIDAEMIA
     Route: 048
     Dates: start: 201212
  2. TREDAPTIVE [Suspect]
     Indication: LIPOPROTEIN (A) INCREASED
     Dosage: 1 DOSAGE FORMS
     Route: 048
     Dates: start: 201209, end: 201209

REACTIONS (4)
  - Rash [None]
  - Pruritus [None]
  - Erythema [None]
  - Blood creatinine increased [None]
